FAERS Safety Report 8936634 (Version 2)
Quarter: 2012Q4

REPORT INFORMATION
  Report Type: 
  Country: US (occurrence: US)
  Receive Date: 20121130
  Receipt Date: 20121213
  Transmission Date: 20130627
  Serious: Yes (Hospitalization)
  Sender: FDA-Public Use
  Company Number: US-PFIZER INC-2012292760

PATIENT
  Age: 60 Year
  Sex: Male
  Weight: 143 kg

DRUGS (5)
  1. IBUPROFEN [Suspect]
     Indication: OSTEOARTHRITIS
     Dosage: 800 mg, 3x/day
     Route: 048
     Dates: start: 20100413, end: 20120806
  2. IBUPROFEN [Suspect]
     Indication: RA
  3. NEXIUM [Concomitant]
     Indication: PROPHYLAXIS
     Dosage: 40 mg, 1x/day
     Route: 048
     Dates: start: 20100413, end: 20120806
  4. LASIX [Concomitant]
     Indication: HYPERTENSION
     Dosage: 40 mg, 1x/day
     Route: 048
     Dates: start: 20100505
  5. LISINOPRIL [Concomitant]
     Indication: CONGESTIVE HEART FAILURE
     Dosage: 2.5 mg, 2x/day
     Route: 048
     Dates: start: 20120115

REACTIONS (2)
  - Renal failure [Unknown]
  - Asthenia [Recovered/Resolved]
